FAERS Safety Report 17206817 (Version 1)
Quarter: 2019Q4

REPORT INFORMATION
  Report Type: Spontaneous
  Country: NO (occurrence: NO)
  Receive Date: 20191227
  Receipt Date: 20191227
  Transmission Date: 20200122
  Serious: Yes (Hospitalization, Other)
  Sender: FDA-Public Use
  Company Number: NO-GLAXOSMITHKLINE-NO2019233821

PATIENT
  Age: 19 Year
  Sex: Female

DRUGS (1)
  1. LAMICTAL [Suspect]
     Active Substance: LAMOTRIGINE
     Indication: DEPRESSION
     Dosage: DOSAGE UNKNOWN
     Route: 048
     Dates: start: 20190901, end: 20190904

REACTIONS (4)
  - Stevens-Johnson syndrome [Recovered/Resolved with Sequelae]
  - Cutaneous vasculitis [Recovered/Resolved with Sequelae]
  - Conjunctivitis [Recovered/Resolved with Sequelae]
  - Epistaxis [Recovered/Resolved with Sequelae]

NARRATIVE: CASE EVENT DATE: 20190914
